FAERS Safety Report 5555547-1 (Version None)
Quarter: 2007Q4

REPORT INFORMATION
  Report Type: 
  Country: None (occurrence: None)
  Receive Date: 20071213
  Receipt Date: 20070822
  Transmission Date: 20080405
  Serious: No
  Sender: FDA-Public Use
  Company Number: US-AMGEN-KDL239737

PATIENT
  Sex: Female

DRUGS (2)
  1. ENBREL [Suspect]
     Indication: RHEUMATOID ARTHRITIS
     Route: 058
     Dates: start: 20050301, end: 20070715
  2. METHOTREXATE [Concomitant]
     Route: 048
     Dates: start: 19990101

REACTIONS (5)
  - ASTHENIA [None]
  - BURNING SENSATION [None]
  - FATIGUE [None]
  - FEELING COLD [None]
  - RASH [None]
